FAERS Safety Report 5001757-1 (Version None)
Quarter: 2006Q2

REPORT INFORMATION
  Report Type: 
  Country: None (occurrence: None)
  Receive Date: 20060512
  Receipt Date: 20060512
  Transmission Date: 20061013
  Serious: No
  Sender: FDA-Public Use
  Company Number: None

PATIENT
  Age: 69 Year
  Sex: Female
  Weight: 115.4404 kg

DRUGS (1)
  1. LEXAPRO [Suspect]
     Indication: ANXIETY
     Dosage: ONE DAILY 10MG P.O
     Route: 048
     Dates: start: 20060418, end: 20060502

REACTIONS (3)
  - DIZZINESS [None]
  - NAUSEA [None]
  - PALPITATIONS [None]
